FAERS Safety Report 5618353-5 (Version None)
Quarter: 2008Q1

REPORT INFORMATION
  Report Type: 
  Country: None (occurrence: None)
  Receive Date: 20080114
  Receipt Date: 20070327
  Transmission Date: 20080703
  Serious: Yes (Hospitalization)
  Sender: FDA-Public Use
  Company Number: A03200702391

PATIENT
  Age: 80 Year
  Sex: Male
  Weight: 51.2565 kg

DRUGS (3)
  1. PLAVIX [Suspect]
     Indication: CORONARY ARTERY DISEASE
     Dosage: 75 MG, QD, ORAL
     Route: 048
     Dates: start: 20020501, end: 20060401
  2. PLAVIX [Suspect]
     Indication: MYOCARDIAL INFARCTION
     Dosage: 75 MG, QD, ORAL
     Route: 048
     Dates: start: 20020501, end: 20060401
  3. ACETYLSALICYLIC ACID SRT [Concomitant]

REACTIONS (2)
  - HAEMORRHAGE [None]
  - SYNCOPE [None]
